FAERS Safety Report 7413155-1 (Version None)
Quarter: 2011Q2

REPORT INFORMATION
  Report Type: 
  Country: None (occurrence: None)
  Receive Date: 20110413
  Receipt Date: 20110405
  Transmission Date: 20111010
  Serious: Yes (Hospitalization)
  Sender: FDA-Public Use
  Company Number: US-AMGEN-USASP2011018257

PATIENT
  Age: 66 Year
  Sex: Female

DRUGS (4)
  1. PROLIA [Suspect]
     Indication: OSTEOPOROSIS
     Dosage: 60 MG, UNK
     Dates: start: 20101022
  2. DRISDOL [Concomitant]
     Dosage: 50000 IU, UNK
  3. CALCIUM [Concomitant]
     Dosage: 500 MG, UNK
  4. VITAMIN D [Concomitant]
     Dosage: 1000 IU, UNK

REACTIONS (3)
  - SEPSIS [None]
  - ARTHRALGIA [None]
  - PAIN IN EXTREMITY [None]
